FAERS Safety Report 9723308 (Version 2)
Quarter: 2014Q1

REPORT INFORMATION
  Report Type: Spontaneous
  Country: IT (occurrence: IT)
  Receive Date: 20131202
  Receipt Date: 20140108
  Transmission Date: 20141002
  Serious: Yes (Hospitalization, Other)
  Sender: FDA-Public Use
  Company Number: IT-ABBVIE-13P-083-1174030-00

PATIENT
  Age: 13 Year
  Sex: Male
  Weight: 59 kg

DRUGS (3)
  1. HUMIRA [Suspect]
     Indication: UVEITIS
     Route: 042
     Dates: start: 20130203, end: 20131019
  2. REUMAFLEX [Suspect]
     Indication: UVEITIS
     Route: 058
     Dates: start: 20130605, end: 20131024
  3. DELTACORTENE [Concomitant]
     Indication: PRODUCT USED FOR UNKNOWN INDICATION
     Route: 048
     Dates: start: 20130408, end: 20131001

REACTIONS (4)
  - Lymphadenopathy [Unknown]
  - Hodgkin^s disease [Unknown]
  - Pyrexia [Unknown]
  - Off label use [Unknown]
